FAERS Safety Report 17895414 (Version 5)
Quarter: 2023Q2

REPORT INFORMATION
  Report Type: Report from Study
  Country: JP (occurrence: JP)
  Receive Date: 20200615
  Receipt Date: 20230526
  Transmission Date: 20230722
  Serious: Yes (Death, Hospitalization)
  Sender: FDA-Public Use
  Company Number: JP-DAIICHI SANKYO (CHINA) HOLDINGS CO., LTD.-DSJ-2020-114543

PATIENT
  Age: 68 Year
  Sex: Male

DRUGS (1)
  1. FAM-TRASTUZUMAB DERUXTECAN-NXKI [Suspect]
     Active Substance: FAM-TRASTUZUMAB DERUXTECAN-NXKI
     Indication: Gastric cancer
     Dosage: 6.4 MG/KG, ONCE EVERY 3 WK
     Route: 041
     Dates: start: 20200508, end: 20200508

REACTIONS (2)
  - Febrile neutropenia [Fatal]
  - Sepsis [Fatal]

NARRATIVE: CASE EVENT DATE: 20200521
